FAERS Safety Report 8992981 (Version 1)
Quarter: 2013Q1

REPORT INFORMATION
  Report Type: Spontaneous
  Country: AR (occurrence: AR)
  Receive Date: 20130102
  Receipt Date: 20130102
  Transmission Date: 20140127
  Serious: Yes (Other)
  Sender: FDA-Public Use
  Company Number: PHHY2012AR121010

PATIENT
  Sex: Female

DRUGS (2)
  1. DIOVAN [Suspect]
     Indication: HYPERTENSION
     Dosage: 1 DF, DAILY
     Route: 048
     Dates: start: 201212
  2. INSULIN [Concomitant]

REACTIONS (6)
  - Coma [Unknown]
  - Delirium [Recovered/Resolved]
  - Memory impairment [Recovered/Resolved]
  - Blood glucose decreased [Recovered/Resolved]
  - Erysipelas [Not Recovered/Not Resolved]
  - Pain [Not Recovered/Not Resolved]
